FAERS Safety Report 15780599 (Version 1)
Quarter: 2019Q1

REPORT INFORMATION
  Report Type: Spontaneous
  Country: RO (occurrence: RO)
  Receive Date: 20190102
  Receipt Date: 20190102
  Transmission Date: 20190417
  Serious: Yes (Other)
  Sender: FDA-Public Use
  Company Number: RO-ROCHE-2236672

PATIENT
  Age: 42 Year
  Sex: Male

DRUGS (1)
  1. ACTILYSE [Suspect]
     Active Substance: ALTEPLASE
     Indication: ISCHAEMIC STROKE
     Route: 065

REACTIONS (3)
  - Haemorrhagic transformation stroke [Unknown]
  - Vertebral artery dissection [Unknown]
  - Vertebral artery thrombosis [Unknown]
